FAERS Safety Report 5365547-2 (Version None)
Quarter: 2007Q2

REPORT INFORMATION
  Report Type: 
  Country: None (occurrence: None)
  Receive Date: 20070530
  Receipt Date: 20070330
  Transmission Date: 20071010
  Serious: No
  Sender: FDA-Public Use
  Company Number: 2007PV032770

PATIENT
  Age: 59 Year
  Sex: Female
  Weight: 87.0906 kg

DRUGS (7)
  1. BYETTA [Suspect]
     Indication: DIABETES MELLITUS NON-INSULIN-DEPENDENT
     Dosage: 5 MCG; BID; SC
     Route: 058
     Dates: start: 20070329, end: 20070329
  2. GLUCOPHAGE [Concomitant]
  3. AMARYL [Concomitant]
  4. JANUVIA [Concomitant]
  5. CITRUCEL [Concomitant]
  6. MIRALAX [Concomitant]
  7. NEXIUM [Concomitant]

REACTIONS (3)
  - DIARRHOEA [None]
  - FLATULENCE [None]
  - NAUSEA [None]
